FAERS Safety Report 18219440 (Version 2)
Quarter: 2020Q3

REPORT INFORMATION
  Report Type: Report from Study
  Country: GB (occurrence: GB)
  Receive Date: 20200901
  Receipt Date: 20200903
  Transmission Date: 20201103
  Serious: Yes (Death, Hospitalization)
  Sender: FDA-Public Use
  Company Number: GB-CELGENEUS-GBR-20200806938

PATIENT
  Age: 74 Year
  Sex: Female

DRUGS (2)
  1. LENALIDOMIDE [Suspect]
     Active Substance: LENALIDOMIDE
     Indication: PLASMA CELL MYELOMA
     Dosage: 55 MILLIGRAM
     Route: 048
     Dates: start: 20200310, end: 20200505
  2. DEXAMETHASONE. [Suspect]
     Active Substance: DEXAMETHASONE
     Indication: PLASMA CELL MYELOMA
     Dosage: 664 MILLIGRAM
     Route: 048
     Dates: start: 20200310, end: 20200505

REACTIONS (1)
  - Oesophageal neoplasm [Fatal]

NARRATIVE: CASE EVENT DATE: 20200606
